FAERS Safety Report 5530002-3 (Version None)
Quarter: 2007Q4

REPORT INFORMATION
  Report Type: 
  Country: None (occurrence: None)
  Receive Date: 20071127
  Receipt Date: 20071119
  Transmission Date: 20080405
  Serious: Yes (Hospitalization)
  Sender: FDA-Public Use
  Company Number: 163-21880-07101011

PATIENT
  Age: 74 Year
  Sex: Female

DRUGS (2)
  1. REVLIMID [Suspect]
     Indication: MULTIPLE MYELOMA
     Dosage: 15 MG, DAILY 21/28DAYS, ORAL
     Route: 048
     Dates: start: 20070604
  2. REVLIMID [Suspect]

REACTIONS (2)
  - CATARACT [None]
  - CONDITION AGGRAVATED [None]
